FAERS Safety Report 10438265 (Version 2)
Quarter: 2014Q3

REPORT INFORMATION
  Report Type: Spontaneous
  Country: US (occurrence: US)
  Receive Date: 20140908
  Receipt Date: 20140908
  Transmission Date: 20150326
  Serious: No
  Sender: FDA-Public Use
  Company Number: US-ELI_LILLY_AND_COMPANY-US201408008869

PATIENT

DRUGS (1)
  1. HUMATROPE [Suspect]
     Active Substance: SOMATROPIN
     Indication: PITUITARY TUMOUR
     Dosage: 0.3 MG, QD
     Route: 065
     Dates: start: 2012

REACTIONS (3)
  - Memory impairment [Not Recovered/Not Resolved]
  - Drug dose omission [Unknown]
  - Eye disorder [Unknown]
